FAERS Safety Report 7744826-5 (Version None)
Quarter: 2011Q3

REPORT INFORMATION
  Report Type: 
  Country: None (occurrence: None)
  Receive Date: 20110912
  Receipt Date: 20110907
  Transmission Date: 20111222
  Serious: No
  Sender: FDA-Public Use
  Company Number: US-BAXTER-2011BH028307

PATIENT
  Age: 21 Year
  Sex: Male
  Weight: 89 kg

DRUGS (34)
  1. FEIBA [Suspect]
     Route: 042
     Dates: start: 20100915, end: 20100915
  2. FEIBA [Suspect]
     Route: 042
     Dates: start: 20100915, end: 20100915
  3. FEIBA [Suspect]
     Route: 042
     Dates: start: 20100929, end: 20100929
  4. FEIBA [Suspect]
     Route: 042
     Dates: start: 20101231, end: 20101231
  5. FEIBA [Suspect]
     Route: 042
     Dates: start: 20110303, end: 20110304
  6. FEIBA [Suspect]
     Route: 042
     Dates: start: 20101215, end: 20101215
  7. FEIBA [Suspect]
     Route: 042
     Dates: start: 20110224, end: 20110224
  8. FEIBA [Suspect]
     Route: 042
     Dates: start: 20110226, end: 20110301
  9. FEIBA [Suspect]
     Route: 042
     Dates: start: 20110423, end: 20110423
  10. FEIBA [Suspect]
     Indication: FACTOR VIII DEFICIENCY
     Route: 042
     Dates: start: 20100711, end: 20100712
  11. FEIBA [Suspect]
     Indication: FACTOR VIII INHIBITION
     Route: 042
     Dates: start: 20100711, end: 20100712
  12. FEIBA [Suspect]
     Route: 042
     Dates: start: 20100809, end: 20100809
  13. FEIBA [Suspect]
     Route: 042
     Dates: start: 20110424, end: 20110601
  14. CELEBREX [Concomitant]
     Indication: PAIN
     Route: 048
     Dates: start: 20100909
  15. FEIBA [Suspect]
     Route: 042
     Dates: start: 20110224, end: 20110224
  16. FEIBA [Suspect]
     Route: 042
     Dates: start: 20110224, end: 20110225
  17. FEIBA [Suspect]
     Route: 042
     Dates: start: 20110226, end: 20110301
  18. FEIBA [Suspect]
     Route: 042
     Dates: start: 20110423, end: 20110423
  19. FEIBA [Suspect]
     Route: 042
     Dates: start: 20110424, end: 20110601
  20. FEIBA [Suspect]
     Route: 042
     Dates: start: 20100809, end: 20100809
  21. FEIBA [Suspect]
     Route: 042
     Dates: start: 20101231, end: 20101231
  22. FEIBA [Suspect]
     Route: 042
     Dates: start: 20110224, end: 20110225
  23. FEIBA [Suspect]
     Route: 042
     Dates: start: 20110303, end: 20110304
  24. FEIBA [Suspect]
     Route: 042
     Dates: start: 20110411, end: 20110422
  25. FEIBA [Suspect]
     Route: 042
     Dates: start: 20110217, end: 20110219
  26. FEIBA [Suspect]
     Route: 042
     Dates: start: 20110217, end: 20110219
  27. FEIBA [Suspect]
     Route: 042
     Dates: start: 20110301, end: 20110303
  28. FEIBA [Suspect]
     Route: 042
     Dates: start: 20110301, end: 20110303
  29. FEIBA [Suspect]
     Route: 042
     Dates: start: 20110411, end: 20110422
  30. FEIBA [Suspect]
     Route: 042
     Dates: start: 20101215, end: 20101215
  31. FEIBA [Suspect]
     Route: 042
     Dates: start: 20110322, end: 20110324
  32. FEIBA [Suspect]
     Route: 042
     Dates: start: 20100929, end: 20100929
  33. FEIBA [Suspect]
     Route: 042
     Dates: start: 20110322, end: 20110324
  34. TYLENOL W/ CODEINE NO. 4 [Concomitant]
     Indication: PAIN
     Route: 048
     Dates: start: 20100730

REACTIONS (1)
  - HEPATITIS B ANTIBODY POSITIVE [None]
